FAERS Safety Report 19246654 (Version 2)
Quarter: 2021Q2

REPORT INFORMATION
  Report Type: Spontaneous
  Country: US (occurrence: US)
  Receive Date: 20210512
  Receipt Date: 20210517
  Transmission Date: 20210717
  Serious: Yes (Other)
  Sender: FDA-Public Use
  Company Number: US-BEH-2021131706

PATIENT
  Age: 71 Year
  Sex: Female

DRUGS (1)
  1. HIZENTRA [Suspect]
     Active Substance: HUMAN IMMUNOGLOBULIN G
     Dosage: UNK
     Route: 065
     Dates: start: 2013

REACTIONS (3)
  - Cervix disorder [Unknown]
  - Suspected transmission of an infectious agent via product [Unknown]
  - Hepatitis B [Unknown]

NARRATIVE: CASE EVENT DATE: 202004
